FAERS Safety Report 7238549-9 (Version None)
Quarter: 2011Q1

REPORT INFORMATION
  Report Type: 
  Country: None (occurrence: None)
  Receive Date: 20110121
  Receipt Date: 20110118
  Transmission Date: 20110831
  Serious: Yes (Death, Hospitalization)
  Sender: FDA-Public Use
  Company Number: CZ-JNJFOC-20101208057

PATIENT
  Sex: Female
  Weight: 85 kg

DRUGS (18)
  1. GOLIMUMAB [Suspect]
     Route: 058
  2. MILURIT [Suspect]
     Indication: PRODUCT USED FOR UNKNOWN INDICATION
  3. AMLODIPINE BESYLATE [Concomitant]
  4. GOLIMUMAB [Suspect]
     Route: 058
  5. SORBIFER [Concomitant]
  6. BLESSIN PLUS H [Concomitant]
  7. ACIDUM FOLICUM [Concomitant]
     Indication: RHEUMATOID ARTHRITIS
  8. LOKREN [Concomitant]
  9. ATORVASTATIN CALCIUM [Concomitant]
     Indication: PRODUCT USED FOR UNKNOWN INDICATION
  10. FURON [Concomitant]
  11. GOLIMUMAB [Suspect]
     Indication: RHEUMATOID ARTHRITIS
     Route: 058
  12. MEDROL [Concomitant]
     Indication: RHEUMATOID ARTHRITIS
  13. ORTANOL [Concomitant]
     Indication: GASTRITIS
  14. VEROSPIRON [Concomitant]
  15. HYPOTYLIN [Concomitant]
  16. MTX [Concomitant]
     Indication: RHEUMATOID ARTHRITIS
  17. LOZAR [Concomitant]
  18. TENAXUM [Concomitant]

REACTIONS (3)
  - RENAL FAILURE ACUTE [None]
  - DERMATITIS ALLERGIC [None]
  - SEPSIS [None]
